FAERS Safety Report 24227737 (Version 3)
Quarter: 2024Q4

REPORT INFORMATION
  Report Type: Spontaneous
  Country: CN (occurrence: CN)
  Receive Date: 20240820
  Receipt Date: 20241231
  Transmission Date: 20250115
  Serious: Yes (Hospitalization, Other)
  Sender: PFIZER
  Company Number: CN-PFIZER INC-PV202400104997

PATIENT
  Age: 85 Year
  Sex: Female
  Weight: 43 kg

DRUGS (3)
  1. XALKORI [Suspect]
     Active Substance: CRIZOTINIB
     Indication: Lung adenocarcinoma
     Dosage: 250 MG, 2X/DAY
     Route: 048
     Dates: start: 20231215
  2. ENTRECTINIB [Concomitant]
     Active Substance: ENTRECTINIB
     Dosage: 600 MG, 1X/DAY
  3. NIFEDIPINE [Concomitant]
     Active Substance: NIFEDIPINE
     Dosage: 30 MG, 1X/DAY
     Route: 048

REACTIONS (65)
  - Pneumonitis [Not Recovered/Not Resolved]
  - Bronchostenosis [Unknown]
  - Hyperpyrexia [Recovered/Resolved]
  - Essential hypertension [Unknown]
  - Hepatic function abnormal [Unknown]
  - White blood cell disorder [Unknown]
  - Hypertension [Unknown]
  - Pneumonia [Unknown]
  - Restrictive pulmonary disease [Unknown]
  - Hypercholesterolaemia [Unknown]
  - Cholelithiasis [Unknown]
  - Aortic valve incompetence [Unknown]
  - Tricuspid valve incompetence [Unknown]
  - Neutrophil count decreased [Unknown]
  - Asthenia [Recovering/Resolving]
  - Dizziness [Recovering/Resolving]
  - Head discomfort [Recovering/Resolving]
  - Headache [Recovering/Resolving]
  - Aortic arteriosclerosis [Unknown]
  - Pericardial effusion [Unknown]
  - Cholecystitis [Unknown]
  - Hyperplasia adrenal [Unknown]
  - Aortic arteriosclerosis [Unknown]
  - Pulmonary artery dilatation [Unknown]
  - Cerebral infarction [Unknown]
  - Cerebral atrophy [Unknown]
  - Cerebral arteriosclerosis [Unknown]
  - Cerebral ischaemia [Unknown]
  - Lacunar infarction [Unknown]
  - Neoplasm progression [Unknown]
  - Nervous system disorder [Unknown]
  - White blood cell count decreased [Unknown]
  - Ageusia [Recovered/Resolved]
  - Oedema peripheral [Recovering/Resolving]
  - Diarrhoea [Recovering/Resolving]
  - Body temperature increased [Unknown]
  - Nasopharyngitis [Unknown]
  - C-reactive protein increased [Unknown]
  - Sneezing [Unknown]
  - Emphysema [Unknown]
  - Mitral valve calcification [Unknown]
  - Aortic disorder [Unknown]
  - Left ventricular enlargement [Unknown]
  - Pleural thickening [Unknown]
  - Effusion [Unknown]
  - Pleural effusion [Unknown]
  - Peritoneal thickening [Unknown]
  - Gastrointestinal disorder [Unknown]
  - Scoliosis [Unknown]
  - Spinal osteoarthritis [Unknown]
  - Off label use [Unknown]
  - Bronchial wall thickening [Unknown]
  - Emphysema [Unknown]
  - Pulmonary calcification [Unknown]
  - Aortic valve calcification [Unknown]
  - Mitral valve calcification [Unknown]
  - Left ventricular enlargement [Unknown]
  - Pleural thickening [Unknown]
  - Spinal osteoarthritis [Unknown]
  - Ultrasound head abnormal [Unknown]
  - Sinusitis [Unknown]
  - Face and mouth X-ray abnormal [Unknown]
  - Taste disorder [Unknown]
  - Peripheral swelling [Unknown]
  - Speech disorder [Unknown]

NARRATIVE: CASE EVENT DATE: 20231216
